FAERS Safety Report 17195671 (Version 2)
Quarter: 2020Q1

REPORT INFORMATION
  Report Type: Spontaneous
  Country: GB (occurrence: GB)
  Receive Date: 20191224
  Receipt Date: 20200106
  Transmission Date: 20200409
  Serious: Yes (Disabling)
  Sender: FDA-Public Use
  Company Number: GB-009507513-1912GBR008709

PATIENT
  Age: 60 Year
  Sex: Female
  Weight: 85.72 kg

DRUGS (7)
  1. COD LIVER OIL [Concomitant]
     Active Substance: COD LIVER OIL
     Dosage: UNK
  2. SIMVASTATIN. [Suspect]
     Active Substance: SIMVASTATIN
     Indication: DIABETES MELLITUS
     Dosage: 40 MILLIGRAM
     Route: 048
  3. VITAMINS (UNSPECIFIED) [Interacting]
     Active Substance: VITAMINS
     Dosage: UNK
  4. SIMVASTATIN. [Interacting]
     Active Substance: SIMVASTATIN
     Indication: DIABETES MELLITUS
     Dosage: 40 MILLIGRAM
     Route: 048
  5. METFORMIN HYDROCHLORIDE. [Concomitant]
     Active Substance: METFORMIN HYDROCHLORIDE
     Dosage: UNK
  6. BETAHISTINE HYDROCHLORIDE [Concomitant]
     Active Substance: BETAHISTINE HYDROCHLORIDE
     Indication: MENIERE^S DISEASE
     Dosage: AS NECESSARY (PRN)
  7. CETIRIZINE HYDROCHLORIDE. [Concomitant]
     Active Substance: CETIRIZINE HYDROCHLORIDE
     Dosage: UNK

REACTIONS (7)
  - Dysphonia [Unknown]
  - Alopecia [Not Recovered/Not Resolved]
  - Arthralgia [Not Recovered/Not Resolved]
  - Asthenia [Not Recovered/Not Resolved]
  - Drug interaction [Unknown]
  - Reaction to excipient [Unknown]
  - Abdominal pain upper [Unknown]
